FAERS Safety Report 10805173 (Version 1)
Quarter: 2015Q1

REPORT INFORMATION
  Report Type: Report from Study
  Country: US (occurrence: US)
  Receive Date: 20150217
  Receipt Date: 20150217
  Transmission Date: 20150721
  Serious: No
  Sender: FDA-Public Use
  Company Number: US-ABBVIE-14K-163-1258119-00

PATIENT
  Age: 54 Year
  Sex: Female

DRUGS (5)
  1. FLONASE [Concomitant]
     Active Substance: FLUTICASONE PROPIONATE
     Indication: NASAL CONGESTION
     Dosage: NASAL SPRAY S SPRAY EACH NOSTRIL
     Route: 045
  2. HUMIRA [Suspect]
     Active Substance: ADALIMUMAB
     Indication: PSORIATIC ARTHROPATHY
     Dates: start: 20140501
  3. AMOXICILLIN AND CLAVULANATE POTASSIUM [Suspect]
     Active Substance: AMOXICILLIN\CLAVULANATE POTASSIUM
     Indication: SINUSITIS
     Dosage: 875MG/12.5MG
     Dates: start: 2014
  4. FLONASE [Concomitant]
     Active Substance: FLUTICASONE PROPIONATE
     Indication: HYPERSENSITIVITY
  5. ALBUTEROL. [Concomitant]
     Active Substance: ALBUTEROL
     Indication: HYPERSENSITIVITY
     Dosage: 90 MCG 2 PUFFS

REACTIONS (11)
  - Injection site bruising [Recovered/Resolved]
  - Sinusitis [Recovered/Resolved]
  - Injection site mass [Recovered/Resolved]
  - Inappropriate schedule of drug administration [Recovered/Resolved]
  - Oropharyngeal pain [Not Recovered/Not Resolved]
  - Rhinorrhoea [Recovering/Resolving]
  - Injection site pain [Not Recovered/Not Resolved]
  - Drug effect incomplete [Unknown]
  - Upper-airway cough syndrome [Not Recovered/Not Resolved]
  - Pharyngeal erythema [Recovering/Resolving]
  - Middle ear effusion [Recovering/Resolving]

NARRATIVE: CASE EVENT DATE: 2014
